FAERS Safety Report 4314206-3 (Version None)
Quarter: 2004Q1

REPORT INFORMATION
  Report Type: 
  Country: None (occurrence: None)
  Receive Date: 20040308
  Receipt Date: 20040308
  Transmission Date: 20041129
  Serious: Yes (Life-Threatening, Hospitalization)
  Sender: FDA-Public Use
  Company Number: None

PATIENT
  Sex: Female
  Weight: 86.1834 kg

DRUGS (11)
  1. LIPITOR [Suspect]
     Indication: BLOOD CHOLESTEROL INCREASED
     Dosage: 1 TABLET DAY ORAL
     Route: 048
     Dates: start: 20030521, end: 20040105
  2. GLUCOPHAGE [Concomitant]
  3. STARLIX [Concomitant]
  4. ALTACE [Concomitant]
  5. GEODON [Concomitant]
  6. RISPERDAL [Concomitant]
  7. NEURONTIN [Concomitant]
  8. WELLBUTRIN SR [Concomitant]
  9. DEPAKOTE [Concomitant]
  10. TENORAMIN [Concomitant]
  11. COGENTIN [Concomitant]

REACTIONS (1)
  - RHABDOMYOLYSIS [None]
